FAERS Safety Report 5256058-3 (Version None)
Quarter: 2007Q1

REPORT INFORMATION
  Report Type: 
  Country: None (occurrence: None)
  Receive Date: 20070302
  Receipt Date: 20070302
  Transmission Date: 20070707
  Serious: Yes (Hospitalization)
  Sender: FDA-Public Use
  Company Number: None

PATIENT
  Sex: Female
  Weight: 78.5 kg

DRUGS (2)
  1. CISPLATIN [Suspect]
     Indication: TONSIL CANCER
     Dosage: 50 MG/M2 IV Q3WKS
     Route: 042
     Dates: start: 20070220
  2. CETUXIMAB [Suspect]
     Indication: TONSIL CANCER
     Dosage: 250 MG/M2 IV Q WKS
     Route: 042
     Dates: start: 20070227

REACTIONS (3)
  - DEHYDRATION [None]
  - MUCOSAL INFLAMMATION [None]
  - PAIN [None]
